FAERS Safety Report 15945093 (Version 2)
Quarter: 2019Q3

REPORT INFORMATION
  Report Type: Spontaneous
  Country: DE (occurrence: DE)
  Receive Date: 20190211
  Receipt Date: 20190813
  Transmission Date: 20191004
  Serious: Yes (Other)
  Sender: FDA-Public Use
  Company Number: DE-SA-2019SA032916

PATIENT
  Age: 47 Year
  Sex: Male

DRUGS (6)
  1. HYPNOREX [Concomitant]
     Active Substance: LITHIUM CARBONATE
  2. ATARAX [ALPRAZOLAM] [Concomitant]
     Active Substance: ALPRAZOLAM
  3. ALLOPURINOL. [Concomitant]
     Active Substance: ALLOPURINOL
  4. BISOPROLOL [Concomitant]
     Active Substance: BISOPROLOL
  5. DUPIXENT [Suspect]
     Active Substance: DUPILUMAB
     Indication: DERMATITIS ATOPIC
     Dosage: 300 MG, QOW
     Route: 058
     Dates: start: 20181121, end: 20181219
  6. L-THYROXIN [LEVOTHYROXINE SODIUM] [Concomitant]

REACTIONS (1)
  - Facial paralysis [Recovering/Resolving]

NARRATIVE: CASE EVENT DATE: 20190101
